FAERS Safety Report 6006291-8 (Version None)
Quarter: 2008Q4

REPORT INFORMATION
  Report Type: 
  Country: None (occurrence: None)
  Receive Date: 20081215
  Receipt Date: 20081205
  Transmission Date: 20090506
  Serious: Yes (Hospitalization)
  Sender: FDA-Public Use
  Company Number: TCI2008A06107

PATIENT
  Age: 33 Year
  Sex: Male

DRUGS (3)
  1. ACTOS [Suspect]
     Indication: INSULIN RESISTANT DIABETES
     Dosage: 15 MG (15 MG, 1 D) PER ORAL : 30 MG (30 MG, 1 D) PER ORAL
     Route: 048
     Dates: end: 20081202
  2. ACTOS [Suspect]
     Indication: INSULIN RESISTANT DIABETES
     Dosage: 15 MG (15 MG, 1 D) PER ORAL : 30 MG (30 MG, 1 D) PER ORAL
     Route: 048
     Dates: start: 20081203, end: 20081205
  3. NOVORAPID (INSULIN ASPART) [Concomitant]

REACTIONS (1)
  - RHABDOMYOLYSIS [None]
